FAERS Safety Report 9253347 (Version 1)
Quarter: 2013Q2

REPORT INFORMATION
  Report Type: Spontaneous
  Country: US (occurrence: US)
  Receive Date: 20130424
  Receipt Date: 20130424
  Transmission Date: 20140414
  Serious: Yes (Life-Threatening, Other)
  Sender: FDA-Public Use
  Company Number: US-009507513-1304USA013561

PATIENT
  Age: 66 Year
  Sex: Female

DRUGS (1)
  1. TEMODAR [Suspect]
     Indication: GLIOBLASTOMA MULTIFORME
     Dosage: UNK
     Route: 048
     Dates: start: 201206, end: 2013

REACTIONS (3)
  - Aplastic anaemia [Not Recovered/Not Resolved]
  - Dysplasia [Not Recovered/Not Resolved]
  - Thrombocytopenia [Not Recovered/Not Resolved]
